FAERS Safety Report 7359060-0 (Version None)
Quarter: 2011Q1

REPORT INFORMATION
  Report Type: 
  Country: None (occurrence: None)
  Receive Date: 20110317
  Receipt Date: 20110308
  Transmission Date: 20110831
  Serious: Yes (Other)
  Sender: FDA-Public Use
  Company Number: CN-ASTRAZENECA-2011SE13005

PATIENT
  Age: 56 Year
  Sex: Female

DRUGS (2)
  1. OMEPRAZOLE [Suspect]
     Indication: GASTRITIS
     Route: 048
  2. OMEPRAZOLE [Suspect]
     Route: 048

REACTIONS (3)
  - GASTRIC POLYPS [None]
  - ABDOMINAL DISTENSION [None]
  - DECREASED APPETITE [None]
